FAERS Safety Report 7039756-0 (Version None)
Quarter: 2010Q4

REPORT INFORMATION
  Report Type: 
  Country: None (occurrence: None)
  Receive Date: 20101012
  Receipt Date: 20100930
  Transmission Date: 20110411
  Serious: Yes (Hospitalization)
  Sender: FDA-Public Use
  Company Number: US-CELGENEUS-163-21880-10092886

PATIENT
  Sex: Female

DRUGS (2)
  1. REVLIMID [Suspect]
     Indication: MULTIPLE MYELOMA
     Dosage: 30-25MG
     Route: 048
     Dates: start: 20061201
  2. REVLIMID [Suspect]
     Route: 048
     Dates: start: 20090501

REACTIONS (3)
  - FALL [None]
  - PNEUMOTHORAX TRAUMATIC [None]
  - RIB FRACTURE [None]
